FAERS Safety Report 4737082-3 (Version None)
Quarter: 2005Q3

REPORT INFORMATION
  Report Type: 
  Country: None (occurrence: None)
  Receive Date: 20050728
  Receipt Date: 20050620
  Transmission Date: 20060218
  Serious: No
  Sender: FDA-Public Use
  Company Number: 200515335US

PATIENT
  Sex: Female

DRUGS (1)
  1. KETEK [Suspect]
     Dates: start: 20050303, end: 20050304

REACTIONS (3)
  - CHROMATURIA [None]
  - DYSGEUSIA [None]
  - RENAL PAIN [None]
